FAERS Safety Report 9475652 (Version 3)
Quarter: 2013Q3

REPORT INFORMATION
  Report Type: Report from Study
  Country: US (occurrence: US)
  Receive Date: 20130826
  Receipt Date: 20130912
  Transmission Date: 20140515
  Serious: Yes (Hospitalization)
  Sender: FDA-Public Use
  Company Number: PHEH2013US015229

PATIENT
  Age: 50 Year
  Sex: Female
  Weight: 90.7 kg

DRUGS (5)
  1. GILENYA [Suspect]
     Indication: MULTIPLE SCLEROSIS
     Dosage: 0.5 MG, QD
     Route: 048
     Dates: start: 20130701, end: 20130823
  2. CYMBALTA [Concomitant]
     Indication: DEPRESSION
     Dosage: 30 MG, DAILY
     Route: 048
     Dates: start: 20130801
  3. PRINIVIL [Concomitant]
     Indication: HYPERTENSION
     Dosage: 5 MG, UNK
     Route: 048
  4. ELAVIL [Concomitant]
     Indication: DEPRESSION
     Dosage: 50 MG, UNK
     Route: 048
     Dates: start: 20130514, end: 20130702
  5. GLIPIZIDE [Concomitant]
     Indication: DIABETES MELLITUS
     Dosage: 5 MG, BID
     Route: 048

REACTIONS (9)
  - Chest pain [Recovered/Resolved]
  - Back pain [Recovered/Resolved]
  - Limb discomfort [Recovered/Resolved]
  - Eye discharge [Unknown]
  - Fatigue [Recovered/Resolved]
  - Palpitations [Recovered/Resolved]
  - Blood pressure decreased [Not Recovered/Not Resolved]
  - Oropharyngeal pain [Unknown]
  - Dizziness [Not Recovered/Not Resolved]
